FAERS Safety Report 14885183 (Version 1)
Quarter: 2018Q2

REPORT INFORMATION
  Report Type: Spontaneous
  Country: IN (occurrence: IN)
  Receive Date: 20180511
  Receipt Date: 20180511
  Transmission Date: 20180711
  Serious: Yes (Other)
  Sender: FDA-Public Use
  Company Number: IN-TELIGENT, INC-IGIL20180268

PATIENT
  Age: 14 Year
  Sex: Male
  Weight: 30 kg

DRUGS (2)
  1. SODIUM CHLORIDE. [Concomitant]
     Active Substance: SODIUM CHLORIDE
     Indication: PREOPERATIVE CARE
     Dosage: UNKNOWN
     Route: 042
  2. CEFTAZIDIME. [Suspect]
     Active Substance: CEFTAZIDIME
     Indication: ANTIBIOTIC PROPHYLAXIS
     Dosage: 1.5 G IN 200 ML SODIUM CHLORIDE
     Route: 042

REACTIONS (6)
  - Seizure [Recovered/Resolved]
  - Incorrect drug administration rate [None]
  - Hypercapnia [Unknown]
  - Loss of consciousness [Recovered/Resolved]
  - Acidosis [Unknown]
  - Hyperalbuminaemia [Unknown]
